FAERS Safety Report 14100082 (Version 1)
Quarter: 2017Q4

REPORT INFORMATION
  Report Type: Spontaneous
  Country: US (occurrence: US)
  Receive Date: 20171017
  Receipt Date: 20171017
  Transmission Date: 20180321
  Serious: No
  Sender: FDA-Public Use
  Company Number: US-MYLANLABS-2017M1065892

PATIENT
  Sex: Female

DRUGS (2)
  1. PALIPERIDONE. [Suspect]
     Active Substance: PALIPERIDONE
     Indication: PRODUCT USED FOR UNKNOWN INDICATION
     Dosage: 1.5 MG, UNK
     Dates: start: 2017
  2. PALIPERIDONE. [Suspect]
     Active Substance: PALIPERIDONE
     Dosage: 9 MG, UNK
     Dates: start: 2017

REACTIONS (3)
  - Paranoia [Unknown]
  - Drug dispensing error [Unknown]
  - Agitation [Unknown]

NARRATIVE: CASE EVENT DATE: 2017
